FAERS Safety Report 8304297-7 (Version None)
Quarter: 2012Q2

REPORT INFORMATION
  Report Type: 
  Country: None (occurrence: None)
  Receive Date: 20120423
  Receipt Date: 20120423
  Transmission Date: 20120825
  Serious: Yes (Life-Threatening, Other)
  Sender: FDA-Public Use
  Company Number: None

PATIENT
  Age: 49 Year
  Sex: Female
  Weight: 48.08 kg

DRUGS (6)
  1. NUVIGIL [Concomitant]
     Route: 048
  2. WELLBUTRIN [Concomitant]
     Route: 048
  3. CLONAZEPAM [Concomitant]
     Route: 048
  4. CYMBALTA [Suspect]
     Indication: DEPRESSION
     Dosage: 60MG.
     Route: 048
     Dates: start: 20091111, end: 20120229
  5. BYSTOLIC [Concomitant]
     Route: 048
  6. AMBIEN [Concomitant]
     Route: 048

REACTIONS (17)
  - ABNORMAL DREAMS [None]
  - MUSCLE DISORDER [None]
  - NAUSEA [None]
  - AKATHISIA [None]
  - HYPERACUSIS [None]
  - PARAESTHESIA ORAL [None]
  - BITE [None]
  - FEELING ABNORMAL [None]
  - MASTICATION DISORDER [None]
  - PARANOIA [None]
  - NIGHTMARE [None]
  - PHOTOPSIA [None]
  - CRYING [None]
  - RESTLESSNESS [None]
  - DIZZINESS [None]
  - DISCOMFORT [None]
  - VERTIGO [None]
